FAERS Safety Report 4952060-7 (Version None)
Quarter: 2006Q1

REPORT INFORMATION
  Report Type: 
  Country: None (occurrence: None)
  Receive Date: 20060320
  Receipt Date: 20060308
  Transmission Date: 20060701
  Serious: Yes (Hospitalization, Other)
  Sender: FDA-Public Use
  Company Number: 220427

PATIENT
  Age: 83 Year
  Sex: Female
  Weight: 45 kg

DRUGS (12)
  1. RITUXAN [Suspect]
     Indication: DIFFUSE LARGE B-CELL LYMPHOMA
     Dosage: 491.2 MG, UNK, INTRAVENOUS
     Route: 042
     Dates: start: 20050330, end: 20050606
  2. CYCLOPHOSPHAMIDE [Suspect]
     Indication: DIFFUSE LARGE B-CELL LYMPHOMA
     Dosage: 45.95 MG, INTRAVENOUS
     Route: 042
     Dates: start: 20050330, end: 20050719
  3. DOXORUBICIN HYDROCHLORIDE [Suspect]
     Indication: DIFFUSE LARGE B-CELL LYMPHOMA
     Dosage: 789 MG, INTRAVENOUS
     Route: 042
     Dates: start: 20050330, end: 20050511
  4. VINCRISTINE [Suspect]
     Indication: DIFFUSE LARGE B-CELL LYMPHOMA
     Dosage: 1.26 MG, INTRAVENOUS
     Route: 042
     Dates: start: 20050530, end: 20050719
  5. PREDNISONE TAB [Suspect]
     Indication: DIFFUSE LARGE B-CELL LYMPHOMA
     Dosage: 65 MG, UNK, ORAL
     Route: 048
     Dates: start: 20050330, end: 20050719
  6. IBUPROFEN [Concomitant]
  7. POLARAMINE [Concomitant]
  8. LOSARTAN POTASSIUM [Concomitant]
  9. AMLODIPINE BESYLATE [Concomitant]
  10. ALFACACIDOL (ALFACALCIDOL) [Concomitant]
  11. ALLOPURINOL [Concomitant]
  12. FAMOTIDINE [Concomitant]

REACTIONS (16)
  - ALANINE AMINOTRANSFERASE INCREASED [None]
  - ANOREXIA [None]
  - BLOOD IMMUNOGLOBULIN A INCREASED [None]
  - BLOOD IMMUNOGLOBULIN G INCREASED [None]
  - BLOOD POTASSIUM DECREASED [None]
  - C-REACTIVE PROTEIN INCREASED [None]
  - COMPUTERISED TOMOGRAM ABNORMAL [None]
  - CONSTIPATION [None]
  - HAEMOGLOBIN DECREASED [None]
  - HEADACHE [None]
  - INTERSTITIAL LUNG DISEASE [None]
  - MALAISE [None]
  - NAUSEA [None]
  - NEUTROPHIL COUNT DECREASED [None]
  - OXYGEN SATURATION DECREASED [None]
  - WHITE BLOOD CELL COUNT DECREASED [None]
